FAERS Safety Report 11726205 (Version 1)
Quarter: 2015Q4

REPORT INFORMATION
  Report Type: Report from Study
  Country: FR (occurrence: FR)
  Receive Date: 20151112
  Receipt Date: 20151112
  Transmission Date: 20160304
  Serious: Yes (Hospitalization)
  Sender: FDA-Public Use
  Company Number: FR-ROCHE-1658502

PATIENT
  Age: 65 Year
  Sex: Male

DRUGS (1)
  1. ESBRIET [Suspect]
     Active Substance: PIRFENIDONE
     Indication: IDIOPATHIC PULMONARY FIBROSIS
     Dosage: 2431 MG
     Route: 048

REACTIONS (2)
  - Weight decreased [Unknown]
  - Nervous system disorder [Unknown]

NARRATIVE: CASE EVENT DATE: 201303
